FAERS Safety Report 7609134-1 (Version None)
Quarter: 2011Q3

REPORT INFORMATION
  Report Type: 
  Country: None (occurrence: None)
  Receive Date: 20110714
  Receipt Date: 20110711
  Transmission Date: 20111222
  Serious: Yes (Death)
  Sender: FDA-Public Use
  Company Number: US-CELGENEUS-163-21880-11061412

PATIENT
  Sex: Female

DRUGS (12)
  1. REVLIMID [Suspect]
     Dosage: 15 MILLIGRAM
     Route: 048
     Dates: start: 20110301, end: 20110101
  2. CALCIUM +D [Concomitant]
     Route: 048
  3. DEXAMETHASONE [Concomitant]
     Dosage: .25 MILLIGRAM
     Route: 048
  4. PERCOCET [Concomitant]
     Dosage: 10/650MG
     Route: 048
  5. METOPROLOL SUCCINATE [Concomitant]
     Dosage: 25 MILLIGRAM
     Route: 048
  6. OXYCONTIN [Concomitant]
     Dosage: 10 MILLIGRAM
     Route: 048
  7. SYNTHROID [Concomitant]
     Dosage: 100 MICROGRAM
     Route: 048
  8. COUMADIN [Concomitant]
     Dosage: 4 MILLIGRAM
     Route: 048
  9. REVLIMID [Suspect]
     Indication: MULTIPLE MYELOMA
     Dosage: 15 MILLIGRAM
     Route: 048
     Dates: start: 20101210
  10. REVLIMID [Suspect]
     Dosage: 25 MILLIGRAM
     Route: 048
     Dates: start: 20110101, end: 20110101
  11. ACTONEL [Concomitant]
     Dosage: 30 MILLIGRAM
     Route: 048
  12. CELEBREX [Concomitant]
     Dosage: 100 MILLIGRAM
     Route: 048

REACTIONS (1)
  - CORONARY ARTERY ANEURYSM [None]
